FAERS Safety Report 23842903 (Version 2)
Quarter: 2024Q2

REPORT INFORMATION
  Report Type: Spontaneous
  Country: US (occurrence: US)
  Receive Date: 20240510
  Receipt Date: 20240610
  Transmission Date: 20240716
  Serious: No
  Sender: FDA-Public Use
  Company Number: US-PFIZER INC-202400103554

PATIENT
  Age: 10 Year
  Sex: Male
  Weight: 32.658 kg

DRUGS (1)
  1. GENOTROPIN [Suspect]
     Active Substance: SOMATROPIN
     Indication: Short stature
     Dosage: 1.6 MG SIX NIGHTS A WEEK

REACTIONS (2)
  - Device leakage [Unknown]
  - Incorrect dose administered [Unknown]
